FAERS Safety Report 5228907-6 (Version None)
Quarter: 2007Q1

REPORT INFORMATION
  Report Type: 
  Country: None (occurrence: None)
  Receive Date: 20070205
  Receipt Date: 20070126
  Transmission Date: 20070707
  Serious: Yes (Hospitalization)
  Sender: FDA-Public Use
  Company Number: HQWYE798126JAN07

PATIENT
  Age: 54 Year
  Sex: Male
  Weight: 70.4 kg

DRUGS (2)
  1. ANCARON [Suspect]
     Indication: VENTRICULAR TACHYCARDIA
     Dosage: UNSPECIFIED
     Route: 048
     Dates: start: 20040201, end: 20050101
  2. DIGOXIN [Concomitant]
     Dosage: UNSPECIFIED

REACTIONS (5)
  - BRADYCARDIA [None]
  - CARDIAC FAILURE [None]
  - CONDITION AGGRAVATED [None]
  - DEFIBRILLATION THRESHOLD INCREASED [None]
  - DRUG LEVEL INCREASED [None]
